FAERS Safety Report 7319074-3 (Version None)
Quarter: 2011Q1

REPORT INFORMATION
  Report Type: 
  Country: None (occurrence: None)
  Receive Date: 20110216
  Receipt Date: 20110202
  Transmission Date: 20110831
  Serious: Yes (Other)
  Sender: FDA-Public Use
  Company Number: GER/USA/11/0017323

PATIENT
  Age: 23 Year
  Sex: Female

DRUGS (6)
  1. FERROUS SULFATE TAB [Suspect]
     Indication: PRODUCT USED FOR UNKNOWN INDICATION
     Dosage: 325 MG, 1 IN 1 D;
  2. ERYTHROMYCIN [Suspect]
     Indication: PREMATURE RUPTURE OF MEMBRANES
     Dosage: INTRAVENOUS, (NOT OTHERWISE SPECIFIED)
     Route: 042
  3. RINGERS LACTATE (FLEBOBAG RING LACT) [Suspect]
     Indication: PREMATURE RUPTURE OF MEMBRANES
     Dosage: 125ML./HR, INTRAVENOUS (NOT OTHERWISE SPECIFIED)
     Route: 042
  4. AMPICILLIN [Suspect]
     Dosage: INTRAVENOUS (NOT OTHERWISE SPECIFIED)
     Route: 042
  5. RANITIDINE [Suspect]
     Indication: PRODUCT USED FOR UNKNOWN INDICATION
     Dosage: 75 MG, 2 IN 1 D
  6. BETAMETHASONE [Suspect]
     Indication: MATERNAL THERAPY TO ENHANCE FOETAL LUNG MATURITY
     Dosage: TWO DOSES OF 12 MG EACH, INTRAMUSCULAR
     Route: 030

REACTIONS (11)
  - BLOOD MAGNESIUM DECREASED [None]
  - CAESAREAN SECTION [None]
  - DYSSTASIA [None]
  - ANAEMIA [None]
  - ALCOHOL USE [None]
  - GAIT DISTURBANCE [None]
  - PARALYSIS [None]
  - ASTHENIA [None]
  - BLOOD POTASSIUM DECREASED [None]
  - HYPOKALAEMIA [None]
  - PREMATURE RUPTURE OF MEMBRANES [None]
